FAERS Safety Report 16377309 (Version 1)
Quarter: 2019Q3

REPORT INFORMATION
  Report Type: Spontaneous
  Country: US (occurrence: US)
  Receive Date: 20190530
  Receipt Date: 20190530
  Transmission Date: 20191004
  Serious: Yes (Disabling, Other)
  Sender: FDA-Public Use
  Company Number: None

PATIENT
  Sex: Female

DRUGS (1)
  1. SINGULAIR [Suspect]
     Active Substance: MONTELUKAST SODIUM
     Indication: ASTHMA

REACTIONS (9)
  - Sleep terror [None]
  - Incontinence [None]
  - Anxiety [None]
  - Head injury [None]
  - Fear [None]
  - Abnormal behaviour [None]
  - Pallor [None]
  - Balance disorder [None]
  - Fall [None]
